FAERS Safety Report 8717640 (Version 3)
Quarter: 2013Q3

REPORT INFORMATION
  Report Type: Report from Study
  Country: JP (occurrence: JP)
  Receive Date: 20120810
  Receipt Date: 20130711
  Transmission Date: 20140515
  Serious: Yes (Other)
  Sender: FDA-Public Use
  Company Number: JP-VERTEX PHARMACEUTICALS INC.-AE-2012-011740

PATIENT
  Age: 69 Year
  Sex: Male

DRUGS (12)
  1. VX-950 (TELAPREVIR) [Suspect]
     Indication: CHRONIC HEPATITIS C
     Dosage: 1500 MG, QD
     Route: 048
     Dates: start: 20120611, end: 20120722
  2. VX-950 (TELAPREVIR) [Suspect]
     Dosage: 1000 MG, QD
     Route: 048
     Dates: start: 20120723, end: 20120902
  3. RIBAVIRIN [Suspect]
     Indication: CHRONIC HEPATITIS C
     Dosage: 800 MG, QD
     Route: 048
     Dates: start: 20120611, end: 20120722
  4. RIBAVIRIN [Suspect]
     Dosage: 600 MG, QD
     Route: 048
     Dates: start: 20120723, end: 20120805
  5. RIBAVIRIN [Suspect]
     Dosage: 400 MG, QD
     Route: 048
     Dates: start: 20120806, end: 20121126
  6. PEGINTERFERON ALFA-2B [Suspect]
     Indication: CHRONIC HEPATITIS C
     Dosage: 50 ?G, QW
     Route: 058
     Dates: start: 20120611, end: 20120625
  7. PEGINTERFERON ALFA-2B [Suspect]
     Dosage: 100 ?G, QW
     Route: 058
     Dates: start: 20120702, end: 20120710
  8. PEGINTERFERON ALFA-2B [Suspect]
     Dosage: 50 ?G, QW
     Route: 058
     Dates: start: 20120717, end: 20120723
  9. PEGINTERFERON ALFA-2B [Suspect]
     Dosage: 100 ?G, QW
     Route: 058
     Dates: start: 20120730, end: 20121126
  10. MYSLEE [Concomitant]
     Dosage: 10 MG, QD
     Route: 048
  11. ALOSITOL [Concomitant]
     Dosage: 100 MG, QD
     Route: 048
  12. MAGLAX [Concomitant]
     Dosage: 660 MG, QD
     Route: 048
     Dates: start: 20121126

REACTIONS (1)
  - Scrotal haematocoele [Recovered/Resolved]
